FAERS Safety Report 9522711 (Version 2)
Quarter: 2013Q3

REPORT INFORMATION
  Report Type: Report from Study
  Country: US (occurrence: US)
  Receive Date: 20130913
  Receipt Date: 20130917
  Transmission Date: 20140515
  Serious: Yes (Hospitalization)
  Sender: FDA-Public Use
  Company Number: US-PFIZER INC-2013258707

PATIENT
  Age: 75 Year
  Sex: Female
  Weight: 58.82 kg

DRUGS (10)
  1. NIFEDIPINE [Suspect]
     Indication: HYPERTENSION
     Dosage: 90 MG, 1X/DAY
     Route: 048
     Dates: start: 2011
  2. CARVEDILOL [Suspect]
     Indication: HYPERTENSION
     Dosage: 6.25 MG, 2X/DAY
     Route: 048
     Dates: start: 2011
  3. INVESTIGATIONAL DRUG [Suspect]
     Indication: MYELOFIBROSIS
     Dosage: 600 MG, DAILY (QD)
     Route: 048
     Dates: start: 20130815, end: 20130817
  4. ULORIC [Concomitant]
     Dosage: UNK
     Dates: start: 20110511
  5. LASIX [Concomitant]
     Dosage: UNK
     Dates: start: 20120107
  6. KCL [Concomitant]
     Dosage: UNK
     Dates: start: 20130206
  7. ASPIRIN [Concomitant]
     Dosage: UNK
     Dates: start: 20020627
  8. CALCITRIOL [Concomitant]
     Dosage: UNK
     Dates: start: 20121029
  9. FAMOTIDINE [Concomitant]
     Dosage: UNK
     Dates: start: 20130612
  10. ATORVASTATIN [Concomitant]
     Dosage: UNK
     Dates: start: 2002

REACTIONS (2)
  - Hypotension [Not Recovered/Not Resolved]
  - Renal failure acute [Not Recovered/Not Resolved]
